FAERS Safety Report 7247181-2 (Version None)
Quarter: 2011Q1

REPORT INFORMATION
  Report Type: 
  Country: None (occurrence: None)
  Receive Date: 20110127
  Receipt Date: 20110118
  Transmission Date: 20110831
  Serious: Yes (Other)
  Sender: FDA-Public Use
  Company Number: JP-ASTRAZENECA-2011SE02423

PATIENT
  Age: 24356 Day
  Sex: Male
  Weight: 94 kg

DRUGS (10)
  1. ATACAND HCT [Suspect]
     Indication: PRODUCT USED FOR UNKNOWN INDICATION
     Route: 048
  2. MOLSIDOLAT [Concomitant]
     Route: 048
  3. BISOPROLOL [Concomitant]
     Route: 048
  4. BLOPRESS [Suspect]
     Route: 048
  5. ASPIRIN [Concomitant]
     Route: 048
  6. DANCOR [Concomitant]
     Route: 048
  7. CRESTOR [Concomitant]
     Route: 048
  8. RASILEZ [Concomitant]
     Route: 048
     Dates: start: 20101118
  9. ALNA [Concomitant]
     Route: 048
  10. BLOPRESS [Suspect]
     Indication: HYPERTENSION
     Route: 048
     Dates: start: 20101129

REACTIONS (2)
  - ECZEMA [None]
  - EYELID OEDEMA [None]
